FAERS Safety Report 10179305 (Version 3)
Quarter: 2014Q2

REPORT INFORMATION
  Report Type: Spontaneous
  Country: US (occurrence: US)
  Receive Date: 20140519
  Receipt Date: 20140530
  Transmission Date: 20141212
  Serious: Yes (Hospitalization)
  Sender: FDA-Public Use
  Company Number: US-TEVA-481845USA

PATIENT
  Sex: Female
  Weight: 36.32 kg

DRUGS (12)
  1. FENTORA [Suspect]
     Indication: CROHN^S DISEASE
  2. FENTORA [Suspect]
     Indication: NEUROPATHY PERIPHERAL
  3. FENTORA [Suspect]
     Indication: MALABSORPTION
  4. BENADRYL [Suspect]
  5. OPIOIDS [Suspect]
  6. TIMZIA [Concomitant]
     Indication: CROHN^S DISEASE
  7. CIPROFLOXACIN [Concomitant]
     Indication: CROHN^S DISEASE
  8. NEXIUM [Concomitant]
  9. KLONOPIN [Concomitant]
     Indication: CONVULSION
  10. ZOFRAN [Concomitant]
  11. VISTARIL [Concomitant]
  12. TYLENOL [Concomitant]

REACTIONS (8)
  - Investigation [Unknown]
  - Off label use [Not Recovered/Not Resolved]
  - Pruritus [Not Recovered/Not Resolved]
  - Fatigue [Not Recovered/Not Resolved]
  - Decreased appetite [Not Recovered/Not Resolved]
  - Nausea [Not Recovered/Not Resolved]
  - Malnutrition [Not Recovered/Not Resolved]
  - Product physical issue [Unknown]
